FAERS Safety Report 8457355-0 (Version None)
Quarter: 2012Q2

REPORT INFORMATION
  Report Type: 
  Country: None (occurrence: None)
  Receive Date: 20120621
  Receipt Date: 20120618
  Transmission Date: 20120825
  Serious: Yes (Disabling)
  Sender: FDA-Public Use
  Company Number: FR-BAXTER-2012BAX008756

PATIENT
  Sex: Female

DRUGS (3)
  1. CYCLOPHOSPHAMIDE [Suspect]
     Route: 042
     Dates: start: 20020225, end: 20020617
  2. FLUOROURACIL [Suspect]
     Route: 042
     Dates: start: 20020225, end: 20020617
  3. EPIRUBICIN HYDROCHLORIDE [Suspect]
     Route: 042
     Dates: start: 20020225, end: 20020617

REACTIONS (3)
  - CARDIAC FAILURE [None]
  - MITRAL VALVE INCOMPETENCE [None]
  - SYSTOLIC DYSFUNCTION [None]
